FAERS Safety Report 14949385 (Version 1)
Quarter: 2018Q2

REPORT INFORMATION
  Report Type: Spontaneous
  Country: CA (occurrence: CA)
  Receive Date: 20180529
  Receipt Date: 20180529
  Transmission Date: 20180711
  Serious: Yes (Other)
  Sender: FDA-Public Use
  Company Number: CA-BAUSCH-BL-2018-014634

PATIENT
  Age: 10 Year
  Sex: Male

DRUGS (5)
  1. MIDAZOLAM [Suspect]
     Active Substance: MIDAZOLAM HYDROCHLORIDE
     Indication: HYPERKINESIA
     Dosage: AS NEEDED, IN COMBINATION WITH KETAMINE INTRAVENOUS BOLUSES
     Route: 065
  2. KETAMINE [Suspect]
     Active Substance: KETAMINE
     Indication: HYPERKINESIA
     Dosage: AS NEEDED, IN COMBINATION WITH MIDAZOLAM
     Route: 040
  3. CLONIDINE. [Suspect]
     Active Substance: CLONIDINE
     Indication: HYPERKINESIA
     Dosage: AS NEEDED
     Route: 050
  4. CHLORAL HYDRATE [Suspect]
     Active Substance: CHLORAL HYDRATE
     Indication: HYPERKINESIA
     Dosage: AS NEEDED, IN COMBINATION WITH LORAZEPAM
     Route: 065
  5. LORAZEPAM. [Suspect]
     Active Substance: LORAZEPAM
     Indication: HYPERKINESIA
     Dosage: AS NEEDED, IN COMBINATION WITH CHLORAL HYDRATE
     Route: 065

REACTIONS (1)
  - Treatment failure [Unknown]
